FAERS Safety Report 7629190-4 (Version None)
Quarter: 2011Q3

REPORT INFORMATION
  Report Type: 
  Country: None (occurrence: None)
  Receive Date: 20110722
  Receipt Date: 20110713
  Transmission Date: 20111222
  Serious: Yes (Other)
  Sender: FDA-Public Use
  Company Number: PHEH2010US02602

PATIENT
  Sex: Female

DRUGS (4)
  1. ZOMETA [Suspect]
     Route: 042
  2. FEMARA [Concomitant]
  3. AMOXICILLIN [Concomitant]
  4. METRONIDAZOLE [Concomitant]

REACTIONS (8)
  - BREAST CANCER [None]
  - INJURY [None]
  - GENERAL PHYSICAL HEALTH DETERIORATION [None]
  - PAIN [None]
  - OSTEONECROSIS OF JAW [None]
  - DISABILITY [None]
  - ANXIETY [None]
  - ANHEDONIA [None]
